FAERS Safety Report 8925136 (Version 3)
Quarter: 2014Q1

REPORT INFORMATION
  Report Type: Spontaneous
  Country: US (occurrence: US)
  Receive Date: 20121126
  Receipt Date: 20140110
  Transmission Date: 20141002
  Serious: Yes (Hospitalization)
  Sender: FDA-Public Use
  Company Number: US-BAYER-2012-121746

PATIENT
  Age: 32 Year
  Sex: Female
  Weight: 48.98 kg

DRUGS (7)
  1. YAZ [Suspect]
     Indication: ENDOMETRIOSIS
     Dosage: UNK
     Dates: start: 200607, end: 200809
  2. YASMIN [Suspect]
     Indication: ENDOMETRIOSIS
     Dosage: UNK
     Dates: start: 200607, end: 200809
  3. ATENOLOL [Concomitant]
     Dosage: UNK
     Dates: start: 2008
  4. BUSPIRONE [Concomitant]
     Dosage: 15 MG, ? TO 1 TAB TWICE DAILY
     Route: 048
  5. REMERON [Concomitant]
     Dosage: 30 MG, UNK
     Route: 048
  6. NADOLOL [Concomitant]
     Dosage: 20 MG, BID
     Route: 048
  7. COMPAZINE [Concomitant]

REACTIONS (12)
  - Cholecystectomy [None]
  - Cholecystitis chronic [None]
  - Biliary dyskinesia [None]
  - Hysterectomy [None]
  - Injury [None]
  - Pain [None]
  - Emotional distress [None]
  - Anhedonia [None]
  - Fear [None]
  - Anxiety [None]
  - Psychological trauma [None]
  - Off label use [None]
